FAERS Safety Report 8795234 (Version 2)
Quarter: 2015Q2

REPORT INFORMATION
  Report Type: Report from Study
  Country: US (occurrence: US)
  Receive Date: 20120917
  Receipt Date: 20150402
  Transmission Date: 20150821
  Serious: Yes (Death)
  Sender: FDA-Public Use
  Company Number: US-ROCHE-1128044

PATIENT
  Age: 54 Year
  Sex: Male

DRUGS (14)
  1. CALTRATE [Concomitant]
     Active Substance: CALCIUM CARBONATE
  2. GLYBURIDE. [Concomitant]
     Active Substance: GLYBURIDE
  3. ASPIRIN. [Concomitant]
     Active Substance: ASPIRIN
     Route: 065
  4. DIFLUCAN [Concomitant]
     Active Substance: FLUCONAZOLE
     Dosage: FOR 10 DAYS
     Route: 065
  5. JANUVIA [Concomitant]
     Active Substance: SITAGLIPTIN PHOSPHATE
  6. CAMPTOTHECIN-11 [Concomitant]
     Route: 065
  7. IMODIUM [Concomitant]
     Active Substance: LOPERAMIDE HYDROCHLORIDE
  8. AVASTIN [Suspect]
     Active Substance: BEVACIZUMAB
     Indication: BRAIN NEOPLASM MALIGNANT
     Route: 042
     Dates: start: 20080331
  9. VICODIN [Concomitant]
     Active Substance: ACETAMINOPHEN\HYDROCODONE BITARTRATE
  10. KYTRIL [Concomitant]
     Active Substance: GRANISETRON HYDROCHLORIDE
     Route: 065
  11. KEPPRA [Concomitant]
     Active Substance: LEVETIRACETAM
  12. LASIX [Concomitant]
     Active Substance: FUROSEMIDE
  13. DECADRON [Concomitant]
     Active Substance: DEXAMETHASONE
     Route: 065
  14. ATROPINE [Concomitant]
     Active Substance: ATROPINE
     Route: 042

REACTIONS (16)
  - Depression [Unknown]
  - Disease progression [Unknown]
  - Death [Fatal]
  - Hemiparesis [Unknown]
  - Oedema [Unknown]
  - Asthenia [Unknown]
  - Diarrhoea [Unknown]
  - Off label use [Unknown]
  - Hypophagia [Unknown]
  - Gliosis [Unknown]
  - Fatigue [Unknown]
  - Weight decreased [Unknown]
  - Oral pain [Unknown]
  - Oedema peripheral [Unknown]
  - Urinary hesitation [Unknown]
  - Appetite disorder [Unknown]

NARRATIVE: CASE EVENT DATE: 20090220
